FAERS Safety Report 7622023-1 (Version None)
Quarter: 2011Q3

REPORT INFORMATION
  Report Type: 
  Country: None (occurrence: None)
  Receive Date: 20110720
  Receipt Date: 20110104
  Transmission Date: 20111222
  Serious: Yes (Other)
  Sender: FDA-Public Use
  Company Number: US-BAYER-2010-002785

PATIENT
  Sex: Female

DRUGS (4)
  1. HYPNOTICS AND SEDATIVES [Concomitant]
  2. NEXAVAR [Suspect]
     Dosage: 400 MG, BID
     Dates: start: 20100101
  3. NEXAVAR [Suspect]
     Indication: HEPATIC NEOPLASM MALIGNANT
     Dosage: 200 MG, BID
     Dates: start: 20101101
  4. ASPIRIN [Concomitant]

REACTIONS (13)
  - FEELING ABNORMAL [None]
  - ABDOMINAL DISCOMFORT [None]
  - NAUSEA [None]
  - VULVOVAGINAL PAIN [None]
  - ABDOMINAL DISTENSION [None]
  - EPISTAXIS [None]
  - GAIT DISTURBANCE [None]
  - ASTHENIA [None]
  - UPPER EXTREMITY MASS [None]
  - VULVOVAGINAL BURNING SENSATION [None]
  - FEELING HOT [None]
  - DIARRHOEA [None]
  - FLATULENCE [None]
